FAERS Safety Report 15565605 (Version 4)
Quarter: 2018Q4

REPORT INFORMATION
  Report Type: Spontaneous
  Country: CA (occurrence: CA)
  Receive Date: 20181030
  Receipt Date: 20181228
  Transmission Date: 20190205
  Serious: Yes (Other)
  Sender: FDA-Public Use
  Company Number: CA-CELLTRION INC.-2018CA021797

PATIENT

DRUGS (6)
  1. INFLECTRA [Suspect]
     Active Substance: INFLIXIMAB-DYYB
     Dosage: 5 MG/KG, CYCLIC ( (545MG) Q 0,2, 6 WEEKS, THEN 8 WEEKS)
     Route: 042
     Dates: start: 20180823
  2. INFLECTRA [Suspect]
     Active Substance: INFLIXIMAB-DYYB
     Indication: COLITIS ULCERATIVE
     Dosage: 5 MG/KG, CYCLIC ( (545MG) Q 0,2, 6 WEEKS, THEN EVERY 8 WEEKS)
     Route: 042
     Dates: start: 20180710
  3. INFLECTRA [Suspect]
     Active Substance: INFLIXIMAB-DYYB
     Dosage: 5 MG/KG, CYCLIC ( (545MG) Q 0,2, 6 WEEKS, THEN 8 WEEKS)
     Route: 042
     Dates: start: 20181017, end: 20181017
  4. PREDNISONE. [Concomitant]
     Active Substance: PREDNISONE
     Dosage: 40 MG, CYCLIC (8 WEEK TAPER)
  5. INFLECTRA [Suspect]
     Active Substance: INFLIXIMAB-DYYB
     Dosage: 5 MG/KG, CYCLIC ( (545MG) Q 0,2, 6 WEEKS, THEN 8 WEEKS)
     Route: 042
     Dates: start: 20180725
  6. INFLECTRA [Suspect]
     Active Substance: INFLIXIMAB-DYYB
     Dosage: 545 MG, EVERY 6 WEEKS;
     Route: 042
     Dates: start: 20181128

REACTIONS (5)
  - Off label use [Unknown]
  - Drug effect incomplete [Unknown]
  - Thrombosis [Unknown]
  - Blood pressure fluctuation [Unknown]
  - Condition aggravated [Recovering/Resolving]

NARRATIVE: CASE EVENT DATE: 20180725
